FAERS Safety Report 6428481-2 (Version None)
Quarter: 2009Q4

REPORT INFORMATION
  Report Type: 
  Country: None (occurrence: None)
  Receive Date: 20091105
  Receipt Date: 20091029
  Transmission Date: 20100525
  Serious: Yes (Death)
  Sender: FDA-Public Use
  Company Number: US-BAXTER-2009BH016740

PATIENT
  Sex: Male

DRUGS (4)
  1. HEPARIN SODIUM INJECTION [Suspect]
     Indication: THROMBOSIS PROPHYLAXIS
     Route: 065
     Dates: start: 20080225, end: 20080225
  2. HEPARIN SODIUM INJECTION [Suspect]
     Indication: ANTICOAGULANT THERAPY
     Route: 065
     Dates: start: 20080225, end: 20080225
  3. HEPARIN SODIUM INJECTION [Suspect]
     Route: 065
     Dates: start: 20080226
  4. HEPARIN SODIUM INJECTION [Suspect]
     Route: 065
     Dates: start: 20080226

REACTIONS (2)
  - DEATH [None]
  - HYPERSENSITIVITY [None]
